FAERS Safety Report 4409581-5 (Version None)
Quarter: 2004Q3

REPORT INFORMATION
  Report Type: 
  Country: None (occurrence: None)
  Receive Date: 20040726
  Receipt Date: 20040709
  Transmission Date: 20050211
  Serious: Yes (Hospitalization)
  Sender: FDA-Public Use
  Company Number: 2004-DE-03811DE

PATIENT
  Age: 88 Year
  Sex: Female

DRUGS (5)
  1. SIFROL (PRAMIPEXOLE DIHYDROCHLORIDE) (TA) (PRAMIPEXOLE) [Suspect]
     Indication: PARKINSON'S DISEASE
     Dosage: 3X0,5/DAY (0.35 MG, 3X0,5/DAY)
     Route: 048
     Dates: start: 20040101, end: 20040627
  2. ASPIRIN [Concomitant]
  3. MODEURETIK MITE [Concomitant]
  4. MONOMAC 40 [Concomitant]
  5. NITRENDIPIN 20 [Concomitant]

REACTIONS (1)
  - HYPONATRAEMIA [None]
